FAERS Safety Report 22648635 (Version 5)
Quarter: 2024Q2

REPORT INFORMATION
  Report Type: Spontaneous
  Country: US (occurrence: US)
  Receive Date: 20230628
  Receipt Date: 20240405
  Transmission Date: 20240716
  Serious: No
  Sender: FDA-Public Use
  Company Number: US-GLAXOSMITHKLINE-US2023AMR088782

PATIENT

DRUGS (10)
  1. ZEJULA [Suspect]
     Active Substance: NIRAPARIB
     Indication: Neoplasm skin
     Dosage: UNK
  2. ZEJULA [Suspect]
     Active Substance: NIRAPARIB
     Indication: Soft tissue neoplasm
  3. ZEJULA [Suspect]
     Active Substance: NIRAPARIB
     Indication: Bone neoplasm
  4. ZEJULA [Suspect]
     Active Substance: NIRAPARIB
     Indication: Breast cancer
  5. ZEJULA [Suspect]
     Active Substance: NIRAPARIB
     Indication: Essential hypertension
  6. ZEJULA [Suspect]
     Active Substance: NIRAPARIB
     Indication: Neoplasm skin
     Dosage: UNK
  7. ZEJULA [Suspect]
     Active Substance: NIRAPARIB
     Indication: Soft tissue neoplasm
  8. ZEJULA [Suspect]
     Active Substance: NIRAPARIB
     Indication: Breast cancer
  9. ZEJULA [Suspect]
     Active Substance: NIRAPARIB
     Indication: Bone neoplasm
  10. ZEJULA [Suspect]
     Active Substance: NIRAPARIB
     Indication: Essential hypertension

REACTIONS (1)
  - Off label use [Unknown]
